FAERS Safety Report 5283719-2 (Version None)
Quarter: 2007Q1

REPORT INFORMATION
  Report Type: 
  Country: None (occurrence: None)
  Receive Date: 20070327
  Receipt Date: 20070314
  Transmission Date: 20070707
  Serious: Yes (Hospitalization)
  Sender: FDA-Public Use
  Company Number: T200700290

PATIENT
  Age: 91 Year
  Sex: Female

DRUGS (2)
  1. OPTIRAY 300 [Suspect]
     Indication: COMPUTERISED TOMOGRAM ABDOMEN
     Dosage: 70 ML SINGLE INTRAVENOUS
     Route: 042
     Dates: start: 20070305, end: 20070305
  2. FLOVENT [Concomitant]

REACTIONS (2)
  - DYSPNOEA [None]
  - WHEEZING [None]
